FAERS Safety Report 8669589 (Version 2)
Quarter: 2012Q4

REPORT INFORMATION
  Report Type: 
  Country: CA (occurrence: CA)
  Receive Date: 20120718
  Receipt Date: 20120910
  Transmission Date: 20130627
  Serious: Yes (Other)
  Sender: FDA-Public Use
  Company Number: CA-BAYER-2012-069934

PATIENT
  Sex: Female

DRUGS (1)
  1. MIRENA [Suspect]

REACTIONS (2)
  - Cyst [None]
  - Pain [None]
